FAERS Safety Report 10482094 (Version 1)
Quarter: 2014Q3

REPORT INFORMATION
  Report Type: Spontaneous
  Country: IT (occurrence: IT)
  Receive Date: 20140929
  Receipt Date: 20140929
  Transmission Date: 20150326
  Serious: Yes (Hospitalization)
  Sender: FDA-Public Use
  Company Number: IT-ABBVIE-14P-083-1289368-00

PATIENT
  Age: 80 Year
  Sex: Female

DRUGS (2)
  1. VALPROATE SODIUM/VALPROIC ACID [Suspect]
     Active Substance: VALPROIC ACID
     Indication: SCHIZOPHRENIA
     Dosage: EXTENDED RELEASE
     Route: 048
     Dates: start: 20140401, end: 20140808
  2. VALPROATE SODIUM/VALPROIC ACID [Suspect]
     Active Substance: VALPROIC ACID
     Dosage: EXTENDED RELEASE
     Route: 048
     Dates: start: 20140401, end: 20140808

REACTIONS (3)
  - Hyponatraemia [Unknown]
  - Dysarthria [Unknown]
  - Bradycardia [Unknown]

NARRATIVE: CASE EVENT DATE: 20140808
